FAERS Safety Report 22359902 (Version 1)
Quarter: 2023Q2

REPORT INFORMATION
  Report Type: Spontaneous
  Country: US (occurrence: US)
  Receive Date: 20230524
  Receipt Date: 20230524
  Transmission Date: 20230722
  Serious: No
  Sender: FDA-Public Use
  Company Number: US-BION-010828

PATIENT
  Sex: Female

DRUGS (1)
  1. MOTRIN IB [Suspect]
     Active Substance: IBUPROFEN
     Indication: Pain in extremity
     Dosage: STRENGTH: 200MG?2 PILLS AT NIGHT
     Dates: start: 20220614

REACTIONS (1)
  - Drug ineffective for unapproved indication [Not Recovered/Not Resolved]
